FAERS Safety Report 7577573-3 (Version None)
Quarter: 2011Q2

REPORT INFORMATION
  Report Type: 
  Country: None (occurrence: None)
  Receive Date: 20110628
  Receipt Date: 20110614
  Transmission Date: 20111010
  Serious: Yes (Other)
  Sender: FDA-Public Use
  Company Number: US-JNJFOC-20110500404

PATIENT
  Sex: Female
  Weight: 86.64 kg

DRUGS (6)
  1. REMICADE [Suspect]
     Indication: CROHN'S DISEASE
     Route: 042
     Dates: start: 20100801
  2. METOPROLOL TARTRATE [Concomitant]
     Indication: CARDIAC DISORDER
     Route: 048
     Dates: start: 20090101
  3. FOLIC ACID [Concomitant]
     Indication: VITAMIN SUPPLEMENTATION
     Route: 048
     Dates: start: 20090101
  4. OMEPRAZOLE [Concomitant]
     Indication: HYPERCHLORHYDRIA
     Dates: start: 20090101
  5. HYDROCODONE [Concomitant]
     Indication: PAIN
     Route: 048
  6. VITAMIN TAB [Concomitant]
     Indication: VITAMIN SUPPLEMENTATION
     Route: 048

REACTIONS (8)
  - PAIN [None]
  - ARTHRALGIA [None]
  - JOINT DISLOCATION [None]
  - DEPRESSION [None]
  - ARTHROPATHY [None]
  - INFLAMMATION [None]
  - JOINT SWELLING [None]
  - WEIGHT INCREASED [None]
